FAERS Safety Report 4996521-3 (Version None)
Quarter: 2006Q2

REPORT INFORMATION
  Report Type: 
  Country: None (occurrence: None)
  Receive Date: 20060509
  Receipt Date: 20051020
  Transmission Date: 20061013
  Serious: Yes (Hospitalization)
  Sender: FDA-Public Use
  Company Number: 200519296GDDC

PATIENT
  Age: 8 Year
  Sex: Male

DRUGS (3)
  1. LANTUS [Suspect]
     Indication: DIABETES MELLITUS
     Route: 058
     Dates: start: 20031009
  2. OPTIPEN (INSULIN PUMP) [Suspect]
     Indication: DIABETES MELLITUS
  3. NOVORAPID [Concomitant]
     Indication: DIABETES MELLITUS
     Route: 058
     Dates: start: 20031009

REACTIONS (5)
  - DEVICE BREAKAGE [None]
  - GASTROENTERITIS VIRAL [None]
  - INFLUENZA [None]
  - KETOACIDOSIS [None]
  - WRONG TECHNIQUE IN DRUG USAGE PROCESS [None]
